FAERS Safety Report 25134540 (Version 2)
Quarter: 2025Q2

REPORT INFORMATION
  Report Type: Spontaneous
  Country: US (occurrence: US)
  Receive Date: 20250328
  Receipt Date: 20250422
  Transmission Date: 20250717
  Serious: No
  Sender: ELI LILLY AND COMPANY
  Company Number: US-ELI_LILLY_AND_COMPANY-US202503022633

PATIENT
  Age: 66 Year
  Sex: Female

DRUGS (4)
  1. LYUMJEV [Suspect]
     Active Substance: INSULIN LISPRO-AABC
     Indication: Blood glucose increased
     Route: 058
     Dates: start: 2024
  2. LYUMJEV [Suspect]
     Active Substance: INSULIN LISPRO-AABC
     Route: 058
     Dates: start: 20250310, end: 20250326
  3. LYUMJEV [Suspect]
     Active Substance: INSULIN LISPRO-AABC
     Route: 058
     Dates: start: 20250404
  4. LANTUS [Concomitant]
     Active Substance: INSULIN GLARGINE
     Indication: Product used for unknown indication
     Route: 065

REACTIONS (18)
  - Blood glucose increased [Unknown]
  - Back pain [Unknown]
  - Trigger finger [Unknown]
  - Arthralgia [Unknown]
  - Fall [Unknown]
  - Pain in extremity [Unknown]
  - Muscle spasms [Unknown]
  - Hypoaesthesia [Unknown]
  - Paraesthesia [Unknown]
  - Blood potassium decreased [Unknown]
  - Blood glucose fluctuation [Unknown]
  - Malaise [Unknown]
  - Pain [Unknown]
  - Mobility decreased [Unknown]
  - Atrophy [Unknown]
  - Lipodystrophy acquired [Unknown]
  - Infusion site bruising [Unknown]
  - Infusion site haemorrhage [Unknown]

NARRATIVE: CASE EVENT DATE: 20250301
